FAERS Safety Report 18268263 (Version 1)
Quarter: 2020Q3

REPORT INFORMATION
  Report Type: Spontaneous
  Country: US (occurrence: US)
  Receive Date: 20200915
  Receipt Date: 20200915
  Transmission Date: 20201103
  Serious: Yes (Other)
  Sender: FDA-Public Use
  Company Number: US-ABBVIE-20K-163-3564070-00

PATIENT
  Age: 58 Year
  Sex: Female

DRUGS (2)
  1. HUMIRA [Suspect]
     Active Substance: ADALIMUMAB
     Indication: PSORIATIC ARTHROPATHY
  2. HUMIRA [Suspect]
     Active Substance: ADALIMUMAB
     Indication: COLITIS ULCERATIVE
     Route: 058
     Dates: start: 2020

REACTIONS (7)
  - Colitis ulcerative [Recovered/Resolved]
  - Device issue [Unknown]
  - Spinal operation [Unknown]
  - Seizure [Recovered/Resolved]
  - Spinal rod insertion [Unknown]
  - Wrong technique in product usage process [Unknown]
  - Neck surgery [Unknown]

NARRATIVE: CASE EVENT DATE: 2020
